FAERS Safety Report 4577834-6 (Version None)
Quarter: 2005Q1

REPORT INFORMATION
  Report Type: 
  Country: None (occurrence: None)
  Receive Date: 20050209
  Receipt Date: 20050126
  Transmission Date: 20050727
  Serious: Yes (Life-Threatening, Hospitalization)
  Sender: FDA-Public Use
  Company Number: 2003-DE-05989DE

PATIENT
  Age: 54 Year
  Sex: Female

DRUGS (9)
  1. SIFROL (TA) [Suspect]
     Indication: PARKINSON'S DISEASE
     Dosage: 1.05 MG (0.35 MG, 3 IN 1 D)
     Route: 048
     Dates: start: 20030616, end: 20031030
  2. SIFROL (TA) [Suspect]
     Indication: RESTLESS LEGS SYNDROME
     Dosage: 1.05 MG (0.35 MG, 3 IN 1 D)
     Route: 048
     Dates: start: 20030616, end: 20031030
  3. OLANZAPIN (TAD) [Concomitant]
  4. HALOPERIDOL [Concomitant]
  5. BENPERIDOL (BENPERIDOL) [Concomitant]
  6. TRIMIPRAMINE MALEATE [Concomitant]
  7. CARBAMAZEPINE [Concomitant]
  8. L-DOPA (LEVODOPA) (TAD) [Concomitant]
  9. QUILONUM (LITHIUM ACETATE) (TAD) [Concomitant]

REACTIONS (6)
  - CARDIAC DISORDER [None]
  - DEPRESSION [None]
  - HALLUCINATION, AUDITORY [None]
  - RESTLESS LEGS SYNDROME [None]
  - SCHIZOAFFECTIVE DISORDER [None]
  - SUICIDE ATTEMPT [None]
